FAERS Safety Report 8857941 (Version 1)
Quarter: 2012Q4

REPORT INFORMATION
  Report Type: 
  Country: US (occurrence: US)
  Receive Date: 20121024
  Receipt Date: 20121024
  Transmission Date: 20130627
  Serious: No
  Sender: FDA-Public Use
  Company Number: US-AMGEN-USASP2012003287

PATIENT
  Sex: Female
  Weight: 97.05 kg

DRUGS (20)
  1. ENBREL [Suspect]
     Indication: RHEUMATOID ARTHRITIS
     Dosage: 50 mg, qwk
     Route: 058
  2. AMLODIPINE [Concomitant]
     Dosage: 5 mg, UNK
  3. CYCLOBENZAPRINE [Concomitant]
     Dosage: 10 mg, UNK
  4. FLUOXETINE [Concomitant]
     Dosage: 20 mg, UNK
  5. FOSAMAX [Concomitant]
     Dosage: 35 mg, UNK
  6. GLIPIZIDE [Concomitant]
     Dosage: 10 mg, UNK
  7. IRON COMPLEX [Concomitant]
  8. LANTUS [Concomitant]
  9. LEUCOVORIN CALCIUM [Concomitant]
     Dosage: 200 mg, UNK
  10. MEDROL [Concomitant]
     Dosage: 32 mg, UNK
  11. MELATONIN [Concomitant]
  12. METFORMIN [Concomitant]
     Dosage: 750 mg, UNK
  13. METHOTREXATE [Concomitant]
     Dosage: 25 mg, UNK
  14. SENNA [Concomitant]
     Dosage: 187 mg, UNK
  15. NOVOLIN [Concomitant]
  16. PRILOSEC [Concomitant]
     Dosage: 20 mg, UNK
  17. VITAMIN C [Concomitant]
  18. VITAMIN D [Concomitant]
     Dosage: 1000 IU, UNK
  19. ETODOLAC [Concomitant]
     Dosage: 400 mg, UNK
  20. WELLBUTRIN XR [Concomitant]
     Dosage: 100 mg, UNK

REACTIONS (2)
  - Injection site swelling [Unknown]
  - Injection site erythema [Unknown]
